FAERS Safety Report 11636822 (Version 1)
Quarter: 2015Q4

REPORT INFORMATION
  Report Type: Spontaneous
  Country: US (occurrence: None)
  Receive Date: 20151015
  Receipt Date: 20151015
  Transmission Date: 20160304
  Serious: Yes (Hospitalization)
  Sender: FDA-Public Use
  Company Number: None

PATIENT
  Age: 31 Year
  Sex: Female
  Weight: 75 kg

DRUGS (2)
  1. BOTOX [Suspect]
     Active Substance: ONABOTULINUMTOXINA
     Indication: SKIN COSMETIC PROCEDURE
     Route: 062
  2. TOPICAL MEDICATIONS [Concomitant]
     Active Substance: UNSPECIFIED INGREDIENT

REACTIONS (10)
  - Paraesthesia [None]
  - Incorrect route of drug administration [None]
  - Urticaria [None]
  - Palpitations [None]
  - Flushing [None]
  - Tachycardia [None]
  - Pallor [None]
  - Speech disorder [None]
  - Chest discomfort [None]
  - Bradycardia [None]

NARRATIVE: CASE EVENT DATE: 20150924
